FAERS Safety Report 11337441 (Version 1)
Quarter: 2015Q3

REPORT INFORMATION
  Report Type: Spontaneous
  Country: US (occurrence: US)
  Receive Date: 20150803
  Receipt Date: 20150803
  Transmission Date: 20151125
  Serious: Yes (Hospitalization, Other)
  Sender: FDA-Public Use
  Company Number: US-ELI_LILLY_AND_COMPANY-US200703002369

PATIENT
  Age: 35 Year
  Sex: Male
  Weight: 90.7 kg

DRUGS (4)
  1. ZYPREXA [Suspect]
     Active Substance: OLANZAPINE
     Dosage: 5 MG, UNKNOWN
     Dates: start: 20010706, end: 20011011
  2. ZYPREXA [Suspect]
     Active Substance: OLANZAPINE
     Dosage: 2.5 MG, UNK
     Dates: start: 20040928
  3. ZYPREXA [Suspect]
     Active Substance: OLANZAPINE
     Dosage: 10 MG, UNKNOWN
     Dates: start: 20011011, end: 20040121
  4. ZYPREXA [Suspect]
     Active Substance: OLANZAPINE
     Dosage: 20 MG, UNKNOWN
     Dates: start: 20040121, end: 20040928

REACTIONS (7)
  - Diabetic coma [Unknown]
  - Metabolic disorder [Unknown]
  - Blood cholesterol abnormal [Unknown]
  - Bipolar I disorder [Unknown]
  - Diabetes mellitus [Unknown]
  - Blood triglycerides increased [Unknown]
  - Hypertension [Unknown]

NARRATIVE: CASE EVENT DATE: 200411
